FAERS Safety Report 13718505 (Version 1)
Quarter: 2017Q3

REPORT INFORMATION
  Report Type: Spontaneous
  Country: DE (occurrence: DE)
  Receive Date: 20170705
  Receipt Date: 20170705
  Transmission Date: 20171127
  Serious: Yes (Other)
  Sender: FDA-Public Use
  Company Number: DE-BAYER-2017-123613

PATIENT
  Age: 79 Year
  Sex: Male

DRUGS (4)
  1. CIPROBAY [Suspect]
     Active Substance: CIPROFLOXACIN
     Indication: DIVERTICULITIS
     Dosage: UNK
     Dates: start: 20170531, end: 20170602
  2. METRONIDAZOLE. [Interacting]
     Active Substance: METRONIDAZOLE
     Dosage: 400 MG, TID
     Route: 048
     Dates: start: 20170531, end: 20170607
  3. AMIODARONE [Interacting]
     Active Substance: AMIODARONE
     Dosage: UNK
  4. MARCUMAR [Concomitant]
     Active Substance: PHENPROCOUMON
     Dosage: UNK

REACTIONS (4)
  - Atrial fibrillation [Recovered/Resolved]
  - Drug ineffective [None]
  - Diverticulum intestinal haemorrhagic [Unknown]
  - Drug interaction [None]

NARRATIVE: CASE EVENT DATE: 20170602
